FAERS Safety Report 17862723 (Version 1)
Quarter: 2020Q2

REPORT INFORMATION
  Report Type: Spontaneous
  Country: GB (occurrence: GB)
  Receive Date: 20200605
  Receipt Date: 20200605
  Transmission Date: 20200714
  Serious: Yes (Other)
  Sender: FDA-Public Use
  Company Number: GB-AUROBINDO-AUR-APL-2020-027016

PATIENT
  Age: 74 Year
  Sex: Male
  Weight: 84 kg

DRUGS (11)
  1. ATORVASTATIN [Concomitant]
     Active Substance: ATORVASTATIN
     Indication: PRODUCT USED FOR UNKNOWN INDICATION
     Dosage: 1 DOSAGE FORM, ONCE A DAY
     Route: 065
     Dates: start: 20190628
  2. DOXAZOSIN [Concomitant]
     Active Substance: DOXAZOSIN MESYLATE
     Indication: PRODUCT USED FOR UNKNOWN INDICATION
     Dosage: 1 DOSAGE FORM, ONCE A DAY
     Dates: start: 20190628
  3. DERMOVATE [Concomitant]
     Active Substance: CLOBETASOL
     Indication: SKIN DISORDER
     Dosage: 1 DOSAGE FORM, ONCE A DAY (FOR 15 DAYS, WHEN LEGS FLARE UP )
     Route: 065
     Dates: start: 20190628
  4. BECLOMETASONE [Concomitant]
     Active Substance: BECLOMETHASONE DIPROPIONATE
     Indication: PRODUCT USED FOR UNKNOWN INDICATION
     Dosage: 8 DOSAGE FORM, ONCE A DAY
     Route: 065
     Dates: start: 20190628
  5. RAMIPRIL CAPSULE [Suspect]
     Active Substance: RAMIPRIL
     Indication: PRODUCT USED FOR UNKNOWN INDICATION
     Dosage: 2.5 MILLIGRAM, ONCE A DAY
     Route: 065
     Dates: start: 20200220
  6. FINASTERIDE. [Concomitant]
     Active Substance: FINASTERIDE
     Indication: PRODUCT USED FOR UNKNOWN INDICATION
     Dosage: 1 DOSAGE FORM, ONCE A DAY
     Route: 065
     Dates: start: 20190628
  7. AMLODIPINE [Concomitant]
     Active Substance: AMLODIPINE BESYLATE
     Indication: PRODUCT USED FOR UNKNOWN INDICATION
     Dosage: 1 DOSAGE FORM, ONCE A DAY
     Route: 065
     Dates: start: 20190628
  8. LANSOPRAZOLE. [Concomitant]
     Active Substance: LANSOPRAZOLE
     Indication: PRODUCT USED FOR UNKNOWN INDICATION
     Dosage: 1 DOSAGE FORM, ONCE A DAY
     Route: 065
     Dates: start: 20191104
  9. WARFARIN SODIUM. [Concomitant]
     Active Substance: WARFARIN SODIUM
     Indication: PRODUCT USED FOR UNKNOWN INDICATION
     Dosage: AS DIRECTED ACCORDING TO ANTICOAGULATION BOOK
     Route: 065
     Dates: start: 20190628
  10. AMOROLFINE [Concomitant]
     Active Substance: AMOROLFINE
     Indication: NAIL DISORDER
     Dosage: 1 DOSAGE FORM, EVERY WEEK (AS DIRECTED TO AFFECTED NAILS)
     Route: 065
     Dates: start: 20190628
  11. ZEROBASE [Concomitant]
     Active Substance: MINERAL OIL\PARAFFIN
     Indication: PRODUCT USED FOR UNKNOWN INDICATION
     Dosage: USE FREQUENTLY AS DIRECTED
     Route: 065
     Dates: start: 20190628

REACTIONS (3)
  - Lip swelling [Recovering/Resolving]
  - Oropharyngeal pain [Unknown]
  - Dry throat [Recovering/Resolving]

NARRATIVE: CASE EVENT DATE: 20200518
